FAERS Safety Report 26137065 (Version 2)
Quarter: 2025Q4

REPORT INFORMATION
  Report Type: Spontaneous
  Country: EU (occurrence: EU)
  Receive Date: 20251209
  Receipt Date: 20251230
  Transmission Date: 20260119
  Serious: Yes (Congenital Anomaly, Other)
  Sender: BRECKENRIDGE PHARMACEUTICAL, INC.
  Company Number: EU-Breckenridge Pharmaceutical, Inc.-2190224

PATIENT

DRUGS (18)
  1. DULOXETINE [Suspect]
     Active Substance: DULOXETINE
     Dates: start: 20230223
  2. MIRTAZAPINE [Suspect]
     Active Substance: MIRTAZAPINE
  3. PYRIDOXINE HYDROCHLORIDE [Concomitant]
     Active Substance: PYRIDOXINE HYDROCHLORIDE
  4. POTASSIUM IODIDE [Concomitant]
     Active Substance: POTASSIUM IODIDE
  5. METHYLCOBALAMIN [Concomitant]
     Active Substance: METHYLCOBALAMIN
  6. CHOLECALCIFEROL [Suspect]
     Active Substance: CHOLECALCIFEROL
  7. ALBUTEROL [Suspect]
     Active Substance: ALBUTEROL
  8. SENNOSIDES A AND B [Suspect]
     Active Substance: SENNOSIDES A AND B
  9. DISODIUM HYDROGEN CITRATE\SODIUM LAURYL SULFOACETATE\SORBIC ACID [Suspect]
     Active Substance: DISODIUM HYDROGEN CITRATE\SODIUM LAURYL SULFOACETATE\SORBIC ACID
  10. ENOXAPARIN SODIUM [Suspect]
     Active Substance: ENOXAPARIN SODIUM
  11. BECLOMETHASONE DIPROPIONATE [Suspect]
     Active Substance: BECLOMETHASONE DIPROPIONATE
  12. FOLIC ACID [Concomitant]
     Active Substance: FOLIC ACID
  13. CLOTRIMAZOLE [Suspect]
     Active Substance: CLOTRIMAZOLE
  14. AMOXICILLIN [Suspect]
     Active Substance: AMOXICILLIN
  15. OMEPRAZOLE [Suspect]
     Active Substance: OMEPRAZOLE
  16. POLYETHYLENE GLYCOLS [Suspect]
     Active Substance: POLYETHYLENE GLYCOLS
  17. LACTULOSE [Suspect]
     Active Substance: LACTULOSE
  18. QUETIAPINE FUMARATE [Suspect]
     Active Substance: QUETIAPINE FUMARATE

REACTIONS (2)
  - Cleft palate [Not Recovered/Not Resolved]
  - Foetal exposure during pregnancy [Recovered/Resolved]
